FAERS Safety Report 7053794-3 (Version None)
Quarter: 2010Q4

REPORT INFORMATION
  Report Type: 
  Country: None (occurrence: None)
  Receive Date: 20101020
  Receipt Date: 20101012
  Transmission Date: 20110411
  Serious: Yes (Other)
  Sender: FDA-Public Use
  Company Number: B0680096A

PATIENT
  Age: 3 Year
  Sex: Female

DRUGS (2)
  1. ZANTAC [Suspect]
     Indication: VOMITING
     Dosage: 1ML PER DAY
     Route: 042
     Dates: start: 20100904, end: 20100904
  2. CEFOTAXIME SODIUM [Concomitant]
     Indication: GASTROENTERITIS
     Route: 042

REACTIONS (2)
  - CONVULSION [None]
  - PYREXIA [None]
